FAERS Safety Report 4786151-0 (Version None)
Quarter: 2005Q3

REPORT INFORMATION
  Report Type: 
  Country: None (occurrence: None)
  Receive Date: 20050930
  Receipt Date: 20050919
  Transmission Date: 20060218
  Serious: Yes (Other)
  Sender: FDA-Public Use
  Company Number: 2005130224

PATIENT
  Age: 55 Year
  Sex: Female
  Weight: 52.1637 kg

DRUGS (1)
  1. ROGAINE [Suspect]
     Indication: ALOPECIA
     Dosage: 1 ML TWICE PER DAY TOPICAL
     Route: 061
     Dates: start: 20000101

REACTIONS (3)
  - GOITRE [None]
  - GRAVITATIONAL OEDEMA [None]
  - THYROID NEOPLASM [None]
